FAERS Safety Report 5892603-2 (Version None)
Quarter: 2008Q3

REPORT INFORMATION
  Report Type: 
  Country: None (occurrence: None)
  Receive Date: 20080923
  Receipt Date: 20080912
  Transmission Date: 20090109
  Serious: Yes (Hospitalization)
  Sender: FDA-Public Use
  Company Number: US-ROCHE-586123

PATIENT
  Age: 70 Year
  Sex: Female

DRUGS (2)
  1. BONIVA [Suspect]
     Indication: OSTEOPENIA
     Route: 065
     Dates: start: 20060101
  2. PRILOSEC [Concomitant]

REACTIONS (1)
  - FEMUR FRACTURE [None]
